FAERS Safety Report 6607801-X (Version None)
Quarter: 2010Q1

REPORT INFORMATION
  Report Type: 
  Country: None (occurrence: None)
  Receive Date: 20100301
  Receipt Date: 20100215
  Transmission Date: 20100710
  Serious: Yes (Death)
  Sender: FDA-Public Use
  Company Number: US-JNJFOC-20070202095

PATIENT
  Age: 52 Year
  Sex: Female
  Weight: 56.7 kg

DRUGS (14)
  1. FENTANYL-100 [Suspect]
     Indication: DRUG USE FOR UNKNOWN INDICATION
     Route: 065
  2. DIAZEPAM [Suspect]
     Indication: DRUG USE FOR UNKNOWN INDICATION
     Route: 065
  3. ACETAMINOPHEN [Suspect]
     Route: 065
  4. ACETAMINOPHEN [Suspect]
     Indication: DRUG USE FOR UNKNOWN INDICATION
     Route: 065
  5. ETHYL ALCOHOL [Concomitant]
     Route: 065
  6. ISOPROPYL ALCOHOL COMPOUND LIQUID [Concomitant]
     Route: 065
  7. CHLORDIAZEPOXIDE [Concomitant]
     Route: 065
  8. TRIAZOLAM [Concomitant]
     Route: 065
  9. PROPOXYPHENE HCL [Concomitant]
     Route: 065
  10. QUETIAPINE [Concomitant]
     Route: 065
  11. DIPHENHYDRAMINE HCL [Concomitant]
     Route: 065
  12. PROMETHAZINE [Concomitant]
     Route: 065
  13. BENZODIAZEPINE NOS [Concomitant]
     Route: 065
  14. KETAMINE HCL [Concomitant]

REACTIONS (3)
  - COMPLETED SUICIDE [None]
  - DRUG TOXICITY [None]
  - OVERDOSE [None]
